FAERS Safety Report 24623828 (Version 1)
Quarter: 2024Q4

REPORT INFORMATION
  Report Type: Spontaneous
  Country: US (occurrence: None)
  Receive Date: 20241114
  Receipt Date: 20241114
  Transmission Date: 20250115
  Serious: Yes (Other)
  Sender: Public
  Company Number: None

PATIENT
  Age: 60 Year
  Sex: Female

DRUGS (24)
  1. AMBRISENTAN [Suspect]
     Active Substance: AMBRISENTAN
     Indication: Pulmonary hypertension
     Dosage: FREQUENCY : DAILY;?
     Route: 048
     Dates: start: 20240905, end: 20241111
  2. OXYCODONE [Concomitant]
     Active Substance: OXYCODONE
  3. DILTIAZEM [Concomitant]
     Active Substance: DILTIAZEM
  4. PRADAXA [Concomitant]
     Active Substance: DABIGATRAN ETEXILATE MESYLATE
  5. CODEINE-GUAIFENESIN [Concomitant]
  6. LIDEX TOP OINT [Concomitant]
  7. LICODAINE TOP CREAM [Concomitant]
  8. POTASSIUM CHLORIDE [Concomitant]
  9. ALBUTEROL [Concomitant]
     Active Substance: ALBUTEROL
  10. UREA TOP CREAM [Concomitant]
  11. MAGNESIUM OXIDE [Concomitant]
     Active Substance: MAGNESIUM OXIDE
  12. NYSTATIN ORAL SUSP [Concomitant]
  13. PANTOPRAZOLE [Concomitant]
     Active Substance: PANTOPRAZOLE
  14. EFFEXOR XR [Concomitant]
     Active Substance: VENLAFAXINE HYDROCHLORIDE
  15. SENOKOT [Concomitant]
     Active Substance: SENNOSIDES
  16. FLONASE [Concomitant]
     Active Substance: FLUTICASONE PROPIONATE
  17. LYRICA [Concomitant]
     Active Substance: PREGABALIN
  18. MONTELUKAST [Concomitant]
     Active Substance: MONTELUKAST
  19. ALBUTEROL SULFATE [Concomitant]
     Active Substance: ALBUTEROL SULFATE
  20. PERIDEX [Concomitant]
     Active Substance: CHLORHEXIDINE GLUCONATE
  21. MUPIROCIN TOP OINT [Concomitant]
  22. CLOTRIMAZOLE TOP CREAM [Concomitant]
  23. TAC IN VANICREAM TOP CREAM [Concomitant]
  24. DEPO-MEDROL [Concomitant]
     Active Substance: METHYLPREDNISOLONE ACETATE

REACTIONS (4)
  - Asthenia [None]
  - Pain in extremity [None]
  - Dyspnoea [None]
  - Oedema peripheral [None]

NARRATIVE: CASE EVENT DATE: 20241111
